FAERS Safety Report 9632753 (Version 2)
Quarter: 2014Q1

REPORT INFORMATION
  Report Type: Spontaneous
  Country: US (occurrence: US)
  Receive Date: 20131018
  Receipt Date: 20140331
  Transmission Date: 20141002
  Serious: Yes (Hospitalization)
  Sender: FDA-Public Use
  Company Number: US-B.I. PHARMACEUTICALS,INC./RIDGEFIELD-2013-BI-32766BP

PATIENT
  Sex: Female
  Weight: 54.43 kg

DRUGS (2)
  1. PRADAXA [Suspect]
     Indication: ATRIAL FIBRILLATION
     Dosage: 300 MG
     Route: 048
     Dates: start: 20111105, end: 20111107
  2. MUCINEX [Concomitant]
     Route: 048

REACTIONS (3)
  - Retroperitoneal haemorrhage [Unknown]
  - Chest discomfort [Unknown]
  - Coagulopathy [Unknown]
